FAERS Safety Report 6273209-2 (Version None)
Quarter: 2009Q3

REPORT INFORMATION
  Report Type: 
  Country: None (occurrence: None)
  Receive Date: 20090715
  Receipt Date: 20090630
  Transmission Date: 20100115
  Serious: Yes (Life-Threatening, Hospitalization, Other)
  Sender: FDA-Public Use
  Company Number: 2009213114

PATIENT
  Age: 71 Year
  Sex: Female
  Weight: 74 kg

DRUGS (4)
  1. FRAGMIN [Suspect]
     Dosage: 12500 IU, 1X/DAY, SUBCUTANEOUS
     Route: 058
     Dates: start: 20090424, end: 20090504
  2. PANTOPRAZOLE SODIUM [Concomitant]
  3. MAGNESIUM (MAGNESIUM) [Concomitant]
  4. TENORMIN [Concomitant]

REACTIONS (5)
  - ADRENAL HAEMORRHAGE [None]
  - ADRENAL INSUFFICIENCY [None]
  - DISORIENTATION [None]
  - THROMBOCYTOPENIA [None]
  - UROSEPSIS [None]
